FAERS Safety Report 5490352-6 (Version None)
Quarter: 2007Q4

REPORT INFORMATION
  Report Type: 
  Country: None (occurrence: None)
  Receive Date: 20071019
  Receipt Date: 20071008
  Transmission Date: 20080405
  Serious: Yes (Hospitalization)
  Sender: FDA-Public Use
  Company Number: IT-NOVOPROD-267474

PATIENT
  Sex: Male
  Weight: 83 kg

DRUGS (23)
  1. NOVOSEVEN [Suspect]
     Indication: TRAUMATIC HAEMORRHAGE
     Dosage: 3 DOSES
     Route: 042
     Dates: start: 20070909, end: 20070909
  2. PROPOFOL [Concomitant]
     Indication: SEDATION
     Dosage: 150 MG, UNK
     Route: 042
     Dates: start: 20070909, end: 20070909
  3. PROPOFOL [Concomitant]
     Dates: start: 20070909
  4. FENTANYL [Concomitant]
     Dosage: 1.2 MG, UNK
     Route: 042
     Dates: start: 20070909, end: 20070909
  5. FENTANYL [Concomitant]
     Dates: start: 20070909
  6. NORCURON [Concomitant]
     Dosage: 50 MG, UNK
     Route: 042
     Dates: start: 20070909, end: 20070909
  7. KETAMINA                           /00171201/ [Concomitant]
     Dosage: 50 MG, UNK
     Route: 042
     Dates: start: 20070909, end: 20070909
  8. CEFAZOLINA [Concomitant]
     Indication: PROPHYLAXIS
     Dosage: 17 MG, UNK
     Route: 042
     Dates: start: 20070909, end: 20070913
  9. IPNOVEL                            /00634101/ [Concomitant]
     Indication: PROPHYLAXIS
     Dosage: 10 MG, UNK
     Route: 042
     Dates: start: 20070909, end: 20070909
  10. TOBRAMICINA                        /00304201/ [Concomitant]
     Indication: PROPHYLAXIS
     Dosage: 300 MG, UNK
     Route: 042
     Dates: start: 20070909, end: 20070909
  11. CLINDAMICINA                       /00166002/ [Concomitant]
     Indication: PROPHYLAXIS
     Dosage: 5 G, UNK
     Route: 042
     Dates: start: 20070910, end: 20070913
  12. DDS [Concomitant]
     Indication: PROPHYLAXIS
     Dosage: 120 MG, UNK
     Dates: start: 20070909
  13. BACTROBAN [Concomitant]
     Indication: PROPHYLAXIS
     Route: 045
     Dates: start: 20070909
  14. LASIX [Concomitant]
     Route: 042
     Dates: start: 20070910, end: 20070912
  15. MEFREN [Concomitant]
     Route: 042
     Dates: start: 20070913
  16. ZANTAC [Concomitant]
     Dates: start: 20070909
  17. INSULINA                           /01223201/ [Concomitant]
     Dates: start: 20070919
  18. VANCOMYCIN [Concomitant]
     Indication: INFECTION PROPHYLAXIS
     Dosage: 3G/24 HR CONTINUES INFUSION
     Route: 042
     Dates: start: 20070913, end: 20070927
  19. CARBAPENEMS [Concomitant]
     Indication: INFECTION PROPHYLAXIS
  20. TIGECYCLINE [Concomitant]
     Indication: ACINETOBACTER INFECTION
     Dosage: 50 X 2
     Dates: start: 20070920, end: 20070927
  21. PERFALGAN [Concomitant]
     Indication: PYREXIA
     Dosage: 500 MG, UNK
     Dates: start: 20070912, end: 20070913
  22. MERONEM                            /01250501/ [Concomitant]
     Dosage: 1 G, TID
     Dates: start: 20070913, end: 20070923
  23. LINEZOLID [Concomitant]
     Dosage: 600 MG, BID
     Dates: start: 20070904

REACTIONS (2)
  - HAEMODYNAMIC INSTABILITY [None]
  - POSTOPERATIVE WOUND INFECTION [None]
